FAERS Safety Report 10079216 (Version 1)
Quarter: 2014Q2

REPORT INFORMATION
  Report Type: Spontaneous
  Country: US (occurrence: US)
  Receive Date: 20140415
  Receipt Date: 20140415
  Transmission Date: 20141212
  Serious: Yes (Other)
  Sender: FDA-Public Use
  Company Number: US-ACTAVIS-2014-07099

PATIENT
  Age: 57 Year
  Sex: Female

DRUGS (3)
  1. CARBOPLATIN (WATSON LABORATORIES) [Suspect]
     Indication: BREAST CANCER STAGE II
     Dosage: UNK UNK, 1/ THREE WEEKS, 5 CYCLES
     Route: 042
  2. DOCETAXEL (UNKNOWN) [Suspect]
     Indication: BREAST CANCER STAGE II
     Dosage: 75 MG/M2, 1/ THREE WEEKS, 5 CYCLES
     Route: 042
  3. TRASTUZUMAB [Suspect]
     Indication: BREAST CANCER STAGE II
     Dosage: 6 MG/KG, 1/ THREE WEEKS
     Route: 042

REACTIONS (1)
  - Thrombotic microangiopathy [Recovering/Resolving]
